FAERS Safety Report 9316749 (Version 1)
Quarter: 2012Q4

REPORT INFORMATION
  Report Type: Spontaneous
  Country: BE (occurrence: None)
  Receive Date: 20121213
  Receipt Date: 20121213
  Transmission Date: 20130627
  Serious: Yes (Hospitalization, Other)
  Sender: FDA-Public Use
  Company Number: AUR-APL-2012-04891

PATIENT
  Sex: Female

DRUGS (8)
  1. LAMOTRIGINE (LAMOTRIGINE) [Suspect]
     Indication: SEIZURE
  2. LAMOTRIGINE (LAMOTRIGINE) [Suspect]
     Indication: ANOXIC ENCEPHALOPATHY
  3. GABAPENTIN (GABAPENTIN) [Suspect]
     Indication: SEIZURES
  4. GABAPENTIN (GABAPENTIN) [Suspect]
     Indication: ANOXIC ENCEPHALOPATHY
  5. LEVETIRACETAM (LEVETIRACETAM) [Suspect]
     Indication: SEIZURES
  6. LEVETIRACETAM (LEVETIRACETAM) [Suspect]
     Indication: ANOXIC ENCEPHALOPATHY
  7. VALPROIC ACID [Suspect]
     Indication: SEIZURES
  8. VALPROIC ACID [Suspect]
     Indication: ANOXIC ENCEPHALOPATHY

REACTIONS (8)
  - Decreased appetite [None]
  - Hypothermia [None]
  - Apathy [None]
  - Oxygen saturation decreased [None]
  - Hypotension [None]
  - Incorrect dose administered [None]
  - Mental status changes [None]
  - Motor dysfunction [None]
